FAERS Safety Report 21357759 (Version 1)
Quarter: 2022Q3

REPORT INFORMATION
  Report Type: Spontaneous
  Country: FR (occurrence: FR)
  Receive Date: 20220921
  Receipt Date: 20220921
  Transmission Date: 20221026
  Serious: Yes (Hospitalization)
  Sender: FDA-Public Use
  Company Number: None

PATIENT
  Age: 73 Year
  Sex: Male
  Weight: 70 kg

DRUGS (5)
  1. CLOZAPINE [Suspect]
     Active Substance: CLOZAPINE
     Indication: Medication error
     Dosage: UNIT DOSE: 100 MG, THERAPY START DATE : NASK, DURATION 1 DAY , FREQUENCY TIME : 1 TOTAL
     Route: 065
     Dates: start: 20220420, end: 20220420
  2. LEVOTHYROXINE [Suspect]
     Active Substance: LEVOTHYROXINE
     Indication: Medication error
     Dosage: UNIT DOSE: 25 MCG, SCORED TABLET, THERAPY START DATE: NASK, LEVOTHYROX 25 MICROGAMES, , DURATION 1 D
     Route: 065
     Dates: start: 20220420, end: 20220420
  3. LOXAPINE [Suspect]
     Active Substance: LOXAPINE
     Indication: Medication error
     Dosage: UNIT DOSE: 25 MG, LOXAPAC 25 MG, , THERAPY START DATE: NASK, DURATION 1 DAY, FREQUENCY TIME : 1 TOTA
     Route: 065
     Dates: start: 20220420, end: 20220420
  4. PRAZEPAM [Suspect]
     Active Substance: PRAZEPAM
     Indication: Medication error
     Dosage: UNIT DOSE: 20 MG, THERAPY START DATE: NASK, DURATION 1 DAY, FREQUENCY TIME : 1 TOTAL
     Route: 065
     Dates: start: 20220420, end: 20220420
  5. OXAZEPAM [Suspect]
     Active Substance: OXAZEPAM
     Indication: Product used for unknown indication
     Dosage: UNIT DOSE :   5 MG, ,  THERAPY START DATE :  ASKU , FREQUENCY TIME : 1 DAY
     Route: 065

REACTIONS (4)
  - Sedation [Recovered/Resolved]
  - Tachycardia [Recovered/Resolved]
  - Pneumonia aspiration [Recovered/Resolved]
  - Wrong patient [Recovered/Resolved]

NARRATIVE: CASE EVENT DATE: 20220420
